FAERS Safety Report 19483529 (Version 1)
Quarter: 2021Q3

REPORT INFORMATION
  Report Type: Spontaneous
  Country: FR (occurrence: FR)
  Receive Date: 20210701
  Receipt Date: 20210701
  Transmission Date: 20211014
  Serious: Yes (Hospitalization)
  Sender: FDA-Public Use
  Company Number: FR-PFIZER INC-2021730069

PATIENT
  Age: 36 Year
  Sex: Female
  Weight: 70 kg

DRUGS (4)
  1. XANAX [Suspect]
     Active Substance: ALPRAZOLAM
     Indication: ANXIETY
     Dosage: 0.75 MG, SINGLE
     Route: 048
     Dates: start: 20210526, end: 20210526
  2. STRESAM [Suspect]
     Active Substance: ETIFOXINE
     Indication: ANXIETY
     Dosage: 2 DF, SINGLE
     Route: 048
     Dates: start: 20210526, end: 20210526
  3. TERCIAN [CYAMEMAZINE TARTRATE] [Suspect]
     Active Substance: CYAMEMAZINE
     Indication: ANXIETY
     Dosage: 25 MG, SINGLE
     Route: 048
     Dates: start: 20210526, end: 20210526
  4. EFFEXOR [Suspect]
     Active Substance: VENLAFAXINE HYDROCHLORIDE
     Indication: ANXIETY
     Dosage: 225 MG, SINGLE
     Route: 048
     Dates: start: 20210526, end: 20210526

REACTIONS (2)
  - Intentional overdose [Recovered/Resolved]
  - Asthenia [Recovering/Resolving]

NARRATIVE: CASE EVENT DATE: 20210526
